FAERS Safety Report 6510956-9 (Version None)
Quarter: 2009Q4

REPORT INFORMATION
  Report Type: 
  Country: None (occurrence: None)
  Receive Date: 20091222
  Receipt Date: 20090209
  Transmission Date: 20100525
  Serious: No
  Sender: FDA-Public Use
  Company Number: US-ASTRAZENECA-2009UW03635

PATIENT
  Age: 74 Year
  Sex: Male
  Weight: 89.8 kg

DRUGS (1)
  1. CRESTOR [Suspect]
     Indication: BLOOD CHOLESTEROL INCREASED
     Route: 048

REACTIONS (5)
  - ABDOMINAL PAIN LOWER [None]
  - CHANGE OF BOWEL HABIT [None]
  - HEADACHE [None]
  - MOOD ALTERED [None]
  - NECK PAIN [None]
